FAERS Safety Report 23957372 (Version 2)
Quarter: 2024Q2

REPORT INFORMATION
  Report Type: Spontaneous
  Country: US (occurrence: US)
  Receive Date: 20240610
  Receipt Date: 20240627
  Transmission Date: 20240716
  Serious: No
  Sender: FDA-Public Use
  Company Number: US-BAYER-2024A083461

PATIENT
  Age: 89 Year
  Sex: Female

DRUGS (2)
  1. MIRALAX [Suspect]
     Active Substance: POLYETHYLENE GLYCOL 3350
     Dosage: 4OZ TWICE DAILY
  2. LISINOPRIL [Concomitant]
     Active Substance: LISINOPRIL

REACTIONS (8)
  - Dry skin [Not Recovered/Not Resolved]
  - Product use issue [None]
  - Incorrect dose administered [None]
  - Inappropriate schedule of product administration [None]
  - Skin exfoliation [None]
  - Eczema [None]
  - Vision blurred [None]
  - Gastrointestinal motility disorder [None]
